FAERS Safety Report 10254184 (Version 1)
Quarter: 2014Q2

REPORT INFORMATION
  Report Type: Spontaneous
  Country: GR (occurrence: GR)
  Receive Date: 20140624
  Receipt Date: 20140624
  Transmission Date: 20141212
  Serious: Yes (Hospitalization, Other)
  Sender: FDA-Public Use
  Company Number: GR-ROCHE-1422069

PATIENT
  Age: 7 Year
  Sex: Male

DRUGS (4)
  1. ROACTEMRA [Suspect]
     Indication: RHEUMATOID ARTHRITIS
     Dosage: 34 INFUSIONS
     Route: 065
     Dates: start: 20120531, end: 20130904
  2. ROACTEMRA [Suspect]
     Dosage: 3RD INFUSION
     Route: 065
     Dates: start: 20140430, end: 20140528
  3. CANAKINUMAB [Suspect]
     Indication: RHEUMATOID ARTHRITIS
     Dosage: 7 INFUSIONS
     Route: 065
     Dates: start: 20131002, end: 20140402
  4. PREZOLON [Concomitant]
     Dosage: 2.5 TABS
     Route: 065

REACTIONS (4)
  - Pyrexia [Recovered/Resolved]
  - Disease recurrence [Not Recovered/Not Resolved]
  - Transaminases increased [Not Recovered/Not Resolved]
  - Joint swelling [Not Recovered/Not Resolved]
